FAERS Safety Report 26206307 (Version 1)
Quarter: 2025Q4

REPORT INFORMATION
  Report Type: Spontaneous
  Country: CA (occurrence: CA)
  Receive Date: 20251229
  Receipt Date: 20251229
  Transmission Date: 20260117
  Serious: Yes (Other)
  Sender: AUROBINDO
  Company Number: CA-AUROBINDO-AUR-APL-2025-067746

PATIENT
  Age: 54 Year
  Sex: Female

DRUGS (2)
  1. GABAPENTIN [Suspect]
     Active Substance: GABAPENTIN
     Indication: Hyperaesthesia
     Dosage: 2400 MILLIGRAM
     Route: 061
  2. TERIFLUNOMIDE [Suspect]
     Active Substance: TERIFLUNOMIDE
     Indication: Multiple sclerosis relapse
     Dosage: 14 MILLIGRAM, ONCE A DAY
     Route: 061

REACTIONS (4)
  - Expanded disability status scale score increased [Unknown]
  - Hyperaesthesia [Unknown]
  - Jaw operation [Unknown]
  - Multiple sclerosis relapse [Unknown]
